FAERS Safety Report 4317590-X (Version None)
Quarter: 2004Q1

REPORT INFORMATION
  Report Type: 
  Country: None (occurrence: None)
  Receive Date: 20040312
  Receipt Date: 20040303
  Transmission Date: 20041129
  Serious: Yes (Hospitalization)
  Sender: FDA-Public Use
  Company Number: GRP04000045

PATIENT
  Age: 40 Year
  Sex: Male
  Weight: 75 kg

DRUGS (4)
  1. DANTAMACRIN (DANTROLENE SODIUM), CAPSULE, UNKNOWNMG [Suspect]
     Indication: QUADRIPARESIS
     Dosage: ORAL
     Route: 048
     Dates: start: 20010101, end: 20040101
  2. DANTAMACRIN (DANTROLENE SODIUM), CAPSULE, UNKNOWNMG [Suspect]
     Indication: QUADRIPARESIS
     Dosage: ORAL
     Route: 048
     Dates: start: 20040101
  3. TROSPIUM CHLORIDE (TROSPIUM CHLORIDE) [Concomitant]
  4. LIORESAL ^CIBA-GEIGY^ (BACLOFEN) [Concomitant]

REACTIONS (8)
  - BONE MARROW DEPRESSION [None]
  - BRADYCARDIA [None]
  - CONDITION AGGRAVATED [None]
  - HALLUCINATION, VISUAL [None]
  - HYPOTHERMIA [None]
  - LEUKOPENIA [None]
  - LIVER FUNCTION TEST ABNORMAL [None]
  - THROMBOCYTOPENIA [None]
